FAERS Safety Report 21733017 (Version 1)
Quarter: 2022Q4

REPORT INFORMATION
  Report Type: Spontaneous
  Country: US (occurrence: US)
  Receive Date: 20221215
  Receipt Date: 20221215
  Transmission Date: 20230113
  Serious: No
  Sender: FDA-Public Use
  Company Number: US-LEO Pharma-343618

PATIENT
  Age: 81 Year
  Sex: Female

DRUGS (4)
  1. PROCARDIA [Concomitant]
     Active Substance: NIFEDIPINE
     Indication: Hypertension
  2. ADBRY [Suspect]
     Active Substance: TRALOKINUMAB-LDRM
     Indication: Dermatitis atopic
     Dosage: FIRST MAINTENANCE DOSE:17-JUN-2022, 4 INJ FOR THE INITIAL DOSE THAN AT 2 INJECTIONS EVERY TWO WEEKS
     Dates: start: 20220602
  3. ADBRY [Suspect]
     Active Substance: TRALOKINUMAB-LDRM
     Indication: Dermatitis atopic
     Dosage: FIRST MAINTENANCE DOSE:17-JUN-2022, 4 INJ FOR THE INITIAL DOSE THAN AT 2 INJECTIONS EVERY TWO WEEKS
     Dates: start: 20220602
  4. LOSARTAN [Concomitant]
     Active Substance: LOSARTAN
     Indication: Hypertension

REACTIONS (10)
  - Nasal congestion [Not Recovered/Not Resolved]
  - Pruritus [Not Recovered/Not Resolved]
  - Erythema [Recovered/Resolved]
  - Headache [Unknown]
  - Pruritus [Recovered/Resolved]
  - Skin warm [Recovered/Resolved]
  - Pruritus [Recovered/Resolved]
  - Skin warm [Recovered/Resolved]
  - Erythema [Recovered/Resolved]
  - Dyspnoea [Not Recovered/Not Resolved]

NARRATIVE: CASE EVENT DATE: 20220619
